FAERS Safety Report 11628901 (Version 6)
Quarter: 2018Q2

REPORT INFORMATION
  Report Type: Report from Study
  Country: BR (occurrence: BR)
  Receive Date: 20151014
  Receipt Date: 20180514
  Transmission Date: 20180711
  Serious: Yes (Life-Threatening, Hospitalization, Other)
  Sender: FDA-Public Use
  Company Number: PHHY2015BR122227

PATIENT
  Age: 45 Year
  Sex: Female
  Weight: 54 kg

DRUGS (8)
  1. CILOSTAZOL. [Concomitant]
     Active Substance: CILOSTAZOL
     Indication: DIABETES MELLITUS
     Dosage: 50 MG, QD
     Route: 048
  2. EXJADE [Suspect]
     Active Substance: DEFERASIROX
     Dosage: 500 MG, QD
     Route: 048
  3. MILGAMMA [Concomitant]
     Active Substance: VITAMIN B
     Indication: NEURALGIA
     Dosage: 150 MG, QD
     Route: 048
  4. EXJADE [Suspect]
     Active Substance: DEFERASIROX
     Dosage: 20 MG/KG, QD (2 DF OF 500 MG (1000 MG))
     Route: 048
     Dates: start: 201602
  5. CARBA [Concomitant]
     Indication: NEUROPATHY PERIPHERAL
     Dosage: 400 MG, QD
     Route: 048
  6. EXJADE [Suspect]
     Active Substance: DEFERASIROX
     Indication: THALASSAEMIA
     Dosage: 500 MG, BID (2 DF OF 500MG )
     Route: 048
     Dates: start: 2010
  7. DESFERAL [Suspect]
     Active Substance: DEFEROXAMINE MESYLATE
     Indication: THALASSAEMIA BETA
     Route: 065
  8. FERRIPROX [Suspect]
     Active Substance: DEFERIPRONE
     Indication: PRODUCT USED FOR UNKNOWN INDICATION
     Route: 065

REACTIONS (44)
  - Alopecia [Recovering/Resolving]
  - Haemoglobin decreased [Recovering/Resolving]
  - Visual impairment [Recovering/Resolving]
  - Facial pain [Unknown]
  - Tooth disorder [Unknown]
  - Mouth injury [Unknown]
  - Speech disorder [Unknown]
  - Dyspnoea [Unknown]
  - Infection [Recovered/Resolved]
  - Hepatic pain [Recovering/Resolving]
  - Neuropathy peripheral [Recovering/Resolving]
  - Mouth swelling [Unknown]
  - Bone loss [Unknown]
  - Tooth infection [Unknown]
  - Blindness [Unknown]
  - Weight decreased [Unknown]
  - Abdominal pain [Recovering/Resolving]
  - Sleep disorder [Unknown]
  - Fear [Unknown]
  - Malaise [Unknown]
  - Pathological fracture [Unknown]
  - Hand fracture [Unknown]
  - Loose tooth [Recovering/Resolving]
  - Pain [Unknown]
  - Wound [Unknown]
  - Serum ferritin increased [Recovering/Resolving]
  - Depressed level of consciousness [Unknown]
  - Tooth loss [Unknown]
  - Deformity [Unknown]
  - Eating disorder [Unknown]
  - Serum ferritin decreased [Unknown]
  - Pain [Unknown]
  - Injection site abscess [Unknown]
  - Ankle fracture [Unknown]
  - Mouth swelling [Recovered/Resolved]
  - Asthenia [Unknown]
  - Apparent death [Unknown]
  - Diabetes mellitus [Not Recovered/Not Resolved]
  - Sepsis [Unknown]
  - Secretion discharge [Unknown]
  - Proteinuria [Recovering/Resolving]
  - Pyrexia [Recovering/Resolving]
  - Onychoclasis [Unknown]
  - Bone disorder [Unknown]

NARRATIVE: CASE EVENT DATE: 201511
